FAERS Safety Report 9123500 (Version 1)
Quarter: 2013Q1

REPORT INFORMATION
  Report Type: Spontaneous
  Country: BR (occurrence: BR)
  Receive Date: 20130115
  Receipt Date: 20130115
  Transmission Date: 20140127
  Serious: Yes (Other)
  Sender: FDA-Public Use
  Company Number: BR-009507513-1301BRA005795

PATIENT
  Sex: Male
  Weight: 83 kg

DRUGS (5)
  1. COPPERTONE SPORT DRY [Suspect]
     Indication: PROPHYLAXIS
     Dosage: UNK
     Route: 061
     Dates: start: 201301, end: 201301
  2. MODURETIC [Suspect]
     Indication: BLOOD PRESSURE INADEQUATELY CONTROLLED
     Dosage: 25/2.5 MG, QD
     Route: 048
  3. JANUVIA [Suspect]
     Indication: DIABETES MELLITUS
     Dosage: 100 MG, QAM
     Route: 048
     Dates: start: 2007
  4. ARADOIS [Concomitant]
     Indication: BLOOD PRESSURE INADEQUATELY CONTROLLED
     Dosage: 25 MG, QD
     Route: 048
  5. EFEXOR [Concomitant]
     Indication: DEPRESSION
     Dosage: 75 MG, QD
     Route: 048

REACTIONS (1)
  - Hypersensitivity [Recovered/Resolved]
